FAERS Safety Report 15456730 (Version 1)
Quarter: 2018Q3

REPORT INFORMATION
  Report Type: Spontaneous
  Country: US (occurrence: US)
  Receive Date: 20180928
  Receipt Date: 20180928
  Transmission Date: 20181010
  Serious: Yes (Disabling)
  Sender: FDA-Public Use
  Company Number: None

PATIENT
  Age: 56 Year
  Sex: Female
  Weight: 68.04 kg

DRUGS (9)
  1. VITAMIN D3 [Concomitant]
     Active Substance: CHOLECALCIFEROL
  2. KENALOG?40 [Suspect]
     Active Substance: TRIAMCINOLONE ACETONIDE
     Indication: BASAL CELL CARCINOMA
     Dosage: ?          QUANTITY:1 DF DOSAGE FORM;?
     Dates: start: 20180807, end: 20180807
  3. TRI?IODINE [Concomitant]
  4. WOMEN OVER 40 ONE DAILY [Concomitant]
  5. TURMARIC [Concomitant]
  6. ULTIMATE OMEGA [Concomitant]
  7. ARMOUR THYROID [Concomitant]
     Active Substance: THYROID, PORCINE
  8. VITAMIN CODE RAW B COMPLEX [Concomitant]
  9. SELENIUM [Concomitant]
     Active Substance: SELENIUM

REACTIONS (1)
  - Urticaria [None]

NARRATIVE: CASE EVENT DATE: 20180809
